FAERS Safety Report 24096318 (Version 1)
Quarter: 2024Q3

REPORT INFORMATION
  Report Type: Report from Study
  Country: TR (occurrence: TR)
  Receive Date: 20240716
  Receipt Date: 20240716
  Transmission Date: 20241016
  Serious: Yes (Other)
  Sender: RANBAXY
  Company Number: TR-SUN PHARMACEUTICAL INDUSTRIES LTD-2024R1-456527

PATIENT
  Sex: Male

DRUGS (1)
  1. DOCETAXEL [Suspect]
     Active Substance: DOCETAXEL\DOCETAXEL ANHYDROUS
     Indication: Chemotherapy
     Dosage: 2 CYCLE
     Route: 065

REACTIONS (7)
  - Type I hypersensitivity [Unknown]
  - Bronchospasm [Unknown]
  - Dyspnoea [Unknown]
  - Hypertension [Unknown]
  - Cyanosis [Not Recovered/Not Resolved]
  - Oxygen saturation decreased [Unknown]
  - Back pain [Unknown]
